FAERS Safety Report 25735208 (Version 1)
Quarter: 2025Q3

REPORT INFORMATION
  Report Type: Spontaneous
  Country: US (occurrence: US)
  Receive Date: 20250828
  Receipt Date: 20250828
  Transmission Date: 20251020
  Serious: No
  Sender: ELI LILLY AND COMPANY
  Company Number: US-ELI_LILLY_AND_COMPANY-US202508017233

PATIENT
  Age: 53 Year
  Sex: Female

DRUGS (4)
  1. ZEPBOUND [Suspect]
     Active Substance: TIRZEPATIDE
     Indication: Weight control
     Route: 065
     Dates: start: 20250401
  2. ZEPBOUND [Suspect]
     Active Substance: TIRZEPATIDE
     Indication: Weight control
     Route: 065
     Dates: start: 20250401
  3. ZEPBOUND [Concomitant]
     Active Substance: TIRZEPATIDE
     Route: 065
     Dates: start: 20250401
  4. ZEPBOUND [Concomitant]
     Active Substance: TIRZEPATIDE
     Route: 065
     Dates: start: 20250401

REACTIONS (2)
  - Drug ineffective [Unknown]
  - Weight increased [Unknown]
